FAERS Safety Report 6019014-3 (Version None)
Quarter: 2008Q4

REPORT INFORMATION
  Report Type: 
  Country: None (occurrence: None)
  Receive Date: 20081221
  Receipt Date: 20081221
  Transmission Date: 20090506
  Serious: Yes (Hospitalization)
  Sender: FDA-Public Use
  Company Number: None

PATIENT
  Age: 55 Year
  Sex: Female
  Weight: 64 kg

DRUGS (10)
  1. IBUPROFEN TABLETS [Suspect]
     Indication: RHEUMATOID ARTHRITIS
     Dosage: 800 MG BID PO PRIOR TO ADMIT
     Route: 048
  2. PREDNISONE TAB [Suspect]
     Indication: RHEUMATOID ARTHRITIS
     Dosage: 5 MG DAILY PO PRIOR TO ADMIT
     Route: 048
  3. METHOTREXATE [Concomitant]
  4. HYDROXYCHLOROQUINE SULFATE [Concomitant]
  5. PREDNISONE [Concomitant]
  6. IBUPROFEN TABLETS [Concomitant]
  7. LEVOTHYROXINE [Concomitant]
  8. VITAMIN D [Concomitant]
  9. MULTI-VITAMIN [Concomitant]
  10. FOLIC ACID [Concomitant]

REACTIONS (1)
  - GASTRIC ULCER PERFORATION [None]
